FAERS Safety Report 10745364 (Version 1)
Quarter: 2015Q1

REPORT INFORMATION
  Report Type: Spontaneous
  Country: DE (occurrence: DE)
  Receive Date: 20150128
  Receipt Date: 20150128
  Transmission Date: 20150721
  Serious: Yes (Congenital Anomaly, Other)
  Sender: FDA-Public Use
  Company Number: DE-MYLANLABS-2015M1001697

PATIENT

DRUGS (1)
  1. METHOTREXATE [Suspect]
     Active Substance: METHOTREXATE
     Dosage: 10 MG/WEEK FROM BEFORE PREGNANCY UNTIL 4 WEEKS AFTER LAST MNP
     Route: 064

REACTIONS (2)
  - Ectopic kidney [Unknown]
  - Foetal exposure during pregnancy [Unknown]
